FAERS Safety Report 11184268 (Version 1)
Quarter: 2015Q2

REPORT INFORMATION
  Report Type: Spontaneous
  Country: US (occurrence: None)
  Receive Date: 20150611
  Receipt Date: 20150611
  Transmission Date: 20150821
  Serious: No
  Sender: FDA-Public Use
  Company Number: None

PATIENT
  Age: 64 Year
  Sex: Male
  Weight: 109.6 kg

DRUGS (1)
  1. RITUXIMAB [Suspect]
     Active Substance: RITUXIMAB
     Route: 042
     Dates: start: 20140905, end: 20140905

REACTIONS (3)
  - Dyspnoea [None]
  - Oxygen saturation decreased [None]
  - Alveolitis allergic [None]

NARRATIVE: CASE EVENT DATE: 20140905
